FAERS Safety Report 4447388-3 (Version None)
Quarter: 2004Q3

REPORT INFORMATION
  Report Type: 
  Country: None (occurrence: None)
  Receive Date: 20040802
  Receipt Date: 20040702
  Transmission Date: 20050211
  Serious: No
  Sender: FDA-Public Use
  Company Number: 2004-118169-NL

PATIENT
  Sex: Female

DRUGS (1)
  1. NUVARING [Suspect]
     Dosage: DF DAILY
     Dates: start: 20040627, end: 20040701

REACTIONS (2)
  - DIARRHOEA [None]
  - NAUSEA [None]
